FAERS Safety Report 7289509-3 (Version None)
Quarter: 2011Q1

REPORT INFORMATION
  Report Type: 
  Country: None (occurrence: None)
  Receive Date: 20110211
  Receipt Date: 20110129
  Transmission Date: 20110831
  Serious: Yes (Other)
  Sender: FDA-Public Use
  Company Number: CH-GENENTECH-313116

PATIENT
  Sex: Female

DRUGS (3)
  1. SPIRICORT [Concomitant]
     Indication: PRODUCT USED FOR UNKNOWN INDICATION
     Dosage: UNK
  2. XOLAIR [Suspect]
     Indication: SEASONAL ALLERGY
     Dosage: 150 MG, UNKNOWN
     Route: 058
     Dates: start: 20101119, end: 20101119
  3. SYMBICORT [Concomitant]
     Indication: PRODUCT USED FOR UNKNOWN INDICATION
     Dosage: UNK

REACTIONS (2)
  - ASTHMA [None]
  - ANAPHYLACTIC REACTION [None]
